FAERS Safety Report 9431548 (Version 1)
Quarter: 2013Q3

REPORT INFORMATION
  Report Type: Spontaneous
  Country: US (occurrence: US)
  Receive Date: 20130731
  Receipt Date: 20130731
  Transmission Date: 20140515
  Serious: No
  Sender: FDA-Public Use
  Company Number: US-009507513-1307USA011411

PATIENT
  Age: 56 Year
  Sex: Male

DRUGS (2)
  1. PEGINTRON [Suspect]
     Indication: HEPATITIS C
     Dosage: 150 MICROGRAM, QW
     Route: 058
     Dates: start: 20130214
  2. ATIVAN [Concomitant]

REACTIONS (7)
  - Fungal infection [Unknown]
  - Hypoaesthesia [Unknown]
  - Glossodynia [Unknown]
  - Infection [Unknown]
  - Drug withdrawal syndrome [Unknown]
  - Dysgeusia [Unknown]
  - Upper respiratory tract infection [Unknown]
